FAERS Safety Report 6284377-0 (Version None)
Quarter: 2009Q3

REPORT INFORMATION
  Report Type: 
  Country: None (occurrence: None)
  Receive Date: 20090727
  Receipt Date: 20090717
  Transmission Date: 20100115
  Serious: Yes (Death)
  Sender: FDA-Public Use
  Company Number: BE-ABBOTT-09P-013-0586078-00

PATIENT
  Sex: Male

DRUGS (5)
  1. TEVETEN [Suspect]
     Indication: HYPERTENSION
     Dosage: 600MG DAILY
     Route: 048
     Dates: start: 20080718, end: 20081126
  2. ALPHA BLOCKER [Concomitant]
     Indication: DRUG USE FOR UNKNOWN INDICATION
     Route: 048
     Dates: end: 20081126
  3. BETA BLOCKING AGENTS [Concomitant]
     Indication: DRUG USE FOR UNKNOWN INDICATION
     Route: 048
     Dates: end: 20081126
  4. CALCIUM ANTAGONIST [Concomitant]
     Indication: DRUG USE FOR UNKNOWN INDICATION
     Route: 048
     Dates: end: 20081126
  5. SIMVASTATIN [Concomitant]
     Indication: DRUG USE FOR UNKNOWN INDICATION
     Route: 065
     Dates: start: 20010104, end: 20081126

REACTIONS (1)
  - SUDDEN DEATH [None]
